FAERS Safety Report 5702960-5 (Version None)
Quarter: 2008Q2

REPORT INFORMATION
  Report Type: 
  Country: None (occurrence: None)
  Receive Date: 20080408
  Receipt Date: 20080325
  Transmission Date: 20081010
  Serious: Yes (Other)
  Sender: FDA-Public Use
  Company Number: JP-1165617

PATIENT
  Age: 14 Year
  Sex: Male

DRUGS (3)
  1. PATANOL [Suspect]
     Indication: CONJUNCTIVITIS ALLERGIC
     Dosage: OPHTHALMMIC
     Route: 047
     Dates: start: 20080310, end: 20080325
  2. CLARITIN (GLICLAZIDE) [Concomitant]
  3. FLONASE [Concomitant]

REACTIONS (8)
  - COUGH [None]
  - DERMATITIS CONTACT [None]
  - EYE PRURITUS [None]
  - EYELID OEDEMA [None]
  - HYPERSENSITIVITY [None]
  - NASAL CONGESTION [None]
  - OCULAR HYPERAEMIA [None]
  - SNEEZING [None]
